FAERS Safety Report 5523718-6 (Version None)
Quarter: 2007Q4

REPORT INFORMATION
  Report Type: 
  Country: None (occurrence: None)
  Receive Date: 20071121
  Receipt Date: 20071114
  Transmission Date: 20080405
  Serious: Yes (Death, Hospitalization)
  Sender: FDA-Public Use
  Company Number: US-PURDUE-USA_2007_0030245

PATIENT
  Age: 31 Year
  Sex: Male

DRUGS (7)
  1. OXYCONTIN [Suspect]
     Indication: ARTHRALGIA
     Dosage: 80 MG, SEE TEXT
     Dates: start: 20040101
  2. ROXICODONE [Suspect]
     Indication: ARTHRALGIA
     Dates: start: 20060101
  3. XANAX [Suspect]
     Indication: DRUG USE FOR UNKNOWN INDICATION
     Dates: start: 19960101
  4. CYMBALTA [Suspect]
     Indication: ARTHRALGIA
     Dates: start: 20060101
  5. VITAMINS [Concomitant]
  6. ANTIHYPERTENSIVES [Concomitant]
     Dates: start: 20050101
  7. ANTI-ASTHMATICS [Concomitant]
     Indication: ASTHMA

REACTIONS (13)
  - ABNORMAL BEHAVIOUR [None]
  - AGITATION [None]
  - ANGER [None]
  - ASTHMA [None]
  - FALL [None]
  - GENERAL PHYSICAL HEALTH DETERIORATION [None]
  - HALLUCINATION, VISUAL [None]
  - HYPERTENSION [None]
  - MALAISE [None]
  - MEMORY IMPAIRMENT [None]
  - MULTIPLE DRUG OVERDOSE INTENTIONAL [None]
  - PERSONALITY CHANGE [None]
  - RESPIRATORY ARREST [None]
